FAERS Safety Report 6387391-X (Version None)
Quarter: 2009Q3

REPORT INFORMATION
  Report Type: 
  Country: None (occurrence: None)
  Receive Date: 20090930
  Receipt Date: 20090914
  Transmission Date: 20100115
  Serious: Yes (Hospitalization, Other)
  Sender: FDA-Public Use
  Company Number: 2008AL009655

PATIENT
  Age: 54 Year
  Sex: Female
  Weight: 117.028 kg

DRUGS (86)
  1. DIGOXIN [Suspect]
     Dosage: 0.25MG, DAILY, PO; 0.125MG, PO
     Route: 048
     Dates: start: 20000401, end: 20090616
  2. PLAVIX [Concomitant]
  3. ISORDIL [Concomitant]
  4. GLYBURIDE [Concomitant]
  5. METFORMIN HYDROCHLORIDE [Concomitant]
  6. LASIX [Concomitant]
  7. LABETALOL HCL [Concomitant]
  8. IRON SULFATETHIAMIN COMPOUND TAB [Concomitant]
  9. VYTORIN [Concomitant]
  10. CLONIDINE [Concomitant]
  11. BENICAR [Concomitant]
  12. METOLAZONE [Concomitant]
  13. TAZTIA [Concomitant]
  14. HYDRALAZINE HCL [Concomitant]
  15. COUMADIN [Concomitant]
  16. POTASSIUM CHLORIDE [Concomitant]
  17. PACERONE [Concomitant]
  18. DILTIAZEM [Concomitant]
  19. ASPIRIN [Concomitant]
  20. FELODIPINE [Concomitant]
  21. PROPYLTHIORACIL [Concomitant]
  22. BENAZEPRIL HYDROCHLORIDE [Concomitant]
  23. ISOSORBIDE [Concomitant]
  24. REGLAN [Concomitant]
  25. METRONIDAZOLE [Concomitant]
  26. DIFLUCAN [Concomitant]
  27. ZITHROMAX [Concomitant]
  28. CARDIZEM [Concomitant]
  29. NOVOFINE [Concomitant]
  30. ALBUTEROL [Concomitant]
  31. BETAPACE [Concomitant]
  32. CLORAZEPATE DIPOTASSIUM [Concomitant]
  33. ESTRADIOL [Concomitant]
  34. ALPHEGAN [Concomitant]
  35. HUMALOG [Concomitant]
  36. COREG [Concomitant]
  37. CLINDAMYCIN [Concomitant]
  38. AVALIDE [Concomitant]
  39. PROTONIX [Concomitant]
  40. XALATAN [Concomitant]
  41. NORVASC [Concomitant]
  42. PROMETHAZINE [Concomitant]
  43. METOCLOPRAMIDE [Concomitant]
  44. TOPROL-XL [Concomitant]
  45. LABETALOL HCL [Concomitant]
  46. KLOR-CON [Concomitant]
  47. PREMARIN [Concomitant]
  48. TRAMADOL HCL [Concomitant]
  49. LEVAQUIN [Concomitant]
  50. AMIODARONE [Concomitant]
  51. FLUCONAZOLE [Concomitant]
  52. METOLAZONE [Concomitant]
  53. BEXTRA [Concomitant]
  54. LUMIGAN [Concomitant]
  55. MACROBID [Concomitant]
  56. FLUOCINONIDE [Concomitant]
  57. HUMULIN R [Concomitant]
  58. CIPRO [Concomitant]
  59. HYDROXYZINE [Concomitant]
  60. HYDROCORTISONE [Concomitant]
  61. K-DUR [Concomitant]
  62. ZIAC [Concomitant]
  63. HISTINEX [Concomitant]
  64. BISOPROLOL [Concomitant]
  65. CARMOL [Concomitant]
  66. ALTACE [Concomitant]
  67. LOPRESSOR [Concomitant]
  68. ISORBID [Concomitant]
  69. DIGIBIND [Concomitant]
  70. KAYEXALATE [Concomitant]
  71. NITROGLYCERIN [Concomitant]
  72. BUMEX [Concomitant]
  73. RYTHMOL [Concomitant]
  74. SLOW-MAG [Concomitant]
  75. CATAPRES [Concomitant]
  76. CLIDINUM [Concomitant]
  77. TERAZOL 1 [Concomitant]
  78. FUROSEMIDE [Concomitant]
  79. FERROUS SULFATE TAB [Concomitant]
  80. TIMOLOL [Concomitant]
  81. WARFARIN SODIUM [Concomitant]
  82. HYDRAZALINE [Concomitant]
  83. AMRIX [Concomitant]
  84. LORAZEPAM [Concomitant]
  85. VITAMIN D [Concomitant]
  86. SIMVASTATIN [Concomitant]

REACTIONS (38)
  - ABDOMINAL PAIN [None]
  - ANAEMIA OF CHRONIC DISEASE [None]
  - ANGINA UNSTABLE [None]
  - ANHEDONIA [None]
  - ANXIETY [None]
  - ATRIAL FIBRILLATION [None]
  - ATRIAL FLUTTER [None]
  - ATRIOVENTRICULAR BLOCK COMPLETE [None]
  - BLOOD ALKALINE PHOSPHATASE INCREASED [None]
  - BLOOD GLUCOSE DECREASED [None]
  - BLOOD GLUCOSE INCREASED [None]
  - BLOOD POTASSIUM DECREASED [None]
  - CARDIAC FAILURE CONGESTIVE [None]
  - CORONARY ARTERY STENOSIS [None]
  - DIABETIC NEPHROPATHY [None]
  - DRUG INTERACTION [None]
  - ECONOMIC PROBLEM [None]
  - ELECTROCARDIOGRAM POOR R-WAVE PROGRESSION [None]
  - ELECTROCARDIOGRAM ST SEGMENT ELEVATION [None]
  - GASTROENTERITIS [None]
  - HYPERKALAEMIA [None]
  - HYPOPHAGIA [None]
  - INTERNATIONAL NORMALISED RATIO INCREASED [None]
  - MULTIPLE INJURIES [None]
  - MYOCARDIAL INFARCTION [None]
  - MYOCARDIAL ISCHAEMIA [None]
  - PAIN [None]
  - PLATELET COUNT DECREASED [None]
  - PLATELET COUNT INCREASED [None]
  - PULMONARY OEDEMA [None]
  - RENAL FAILURE ACUTE [None]
  - RENAL FAILURE CHRONIC [None]
  - RENAL TUBULAR NECROSIS [None]
  - SOCIAL PROBLEM [None]
  - SUPRAVENTRICULAR TACHYCARDIA [None]
  - SYNCOPE [None]
  - THERAPEUTIC AGENT TOXICITY [None]
  - URINARY TRACT INFECTION [None]
